FAERS Safety Report 4334854-4 (Version None)
Quarter: 2004Q2

REPORT INFORMATION
  Report Type: 
  Country: None (occurrence: None)
  Receive Date: 20040405
  Receipt Date: 20040326
  Transmission Date: 20050107
  Serious: Yes (Other)
  Sender: FDA-Public Use
  Company Number: 2004205699GB

PATIENT
  Age: 34 Year
  Sex: Female
  Weight: 65 kg

DRUGS (2)
  1. DEPO-PROVERA [Suspect]
     Indication: CONTRACEPTION
     Dosage: 150 MG/ 1ST INJECTION, INTRAMUSCULAR;  150 MG/ LAST INJECTION, INTRAMUSCULAR
     Route: 030
     Dates: start: 20030829, end: 20030829
  2. DEPO-PROVERA [Suspect]
     Indication: CONTRACEPTION
     Dosage: 150 MG/ 1ST INJECTION, INTRAMUSCULAR;  150 MG/ LAST INJECTION, INTRAMUSCULAR
     Route: 030
     Dates: start: 20031126, end: 20031126

REACTIONS (2)
  - LOSS OF CONSCIOUSNESS [None]
  - SYNCOPE [None]
